FAERS Safety Report 7008247-5 (Version None)
Quarter: 2010Q3

REPORT INFORMATION
  Report Type: 
  Country: None (occurrence: None)
  Receive Date: 20100922
  Receipt Date: 20100920
  Transmission Date: 20110219
  Serious: Yes (Other)
  Sender: FDA-Public Use
  Company Number: IN-ROXANE LABORATORIES, INC.-2010-RO-01249RO

PATIENT
  Age: 14 Year
  Sex: Female

DRUGS (4)
  1. CALCITRIOL [Suspect]
     Indication: RICKETS
     Dosage: 0.25 G
  2. CALCITRIOL [Suspect]
     Dosage: 0.5 G
  3. CALCIUM CARBONATE [Suspect]
     Indication: RICKETS
     Dosage: 500 MG
     Route: 048
  4. CALCIUM CARBONATE [Suspect]
     Dosage: 750 MG
     Route: 048

REACTIONS (2)
  - HYPERCALCIURIA [None]
  - NEPHROLITHIASIS [None]
